FAERS Safety Report 5008850-8 (Version None)
Quarter: 2006Q2

REPORT INFORMATION
  Report Type: 
  Country: None (occurrence: None)
  Receive Date: 20060404
  Receipt Date: 20051102
  Transmission Date: 20061013
  Serious: No
  Sender: FDA-Public Use
  Company Number: USA0511112521

PATIENT
  Age: 52 Year
  Sex: Female
  Weight: 95.5 kg

DRUGS (9)
  1. CYMBALTA [Suspect]
     Indication: NEUROPATHY PERIPHERAL
     Dosage: 60 MG, 2/D
     Dates: start: 20050901
  2. TOPAMAX [Concomitant]
  3. WELLBUTRIN [Concomitant]
  4. ZYRTEC [Concomitant]
  5. ACCOLATE [Concomitant]
  6. PROTONIX [Concomitant]
  7. SOMA [Concomitant]
  8. ESZOPICLONE [Concomitant]
  9. FIORICET [Concomitant]

REACTIONS (5)
  - HYPERHIDROSIS [None]
  - INCREASED APPETITE [None]
  - IRRITABILITY [None]
  - SOCIAL AVOIDANT BEHAVIOUR [None]
  - WEIGHT INCREASED [None]
